FAERS Safety Report 12927855 (Version 2)
Quarter: 2016Q4

REPORT INFORMATION
  Report Type: Spontaneous
  Country: US (occurrence: US)
  Receive Date: 20161110
  Receipt Date: 20161214
  Transmission Date: 20170207
  Serious: Yes (Other)
  Sender: FDA-Public Use
  Company Number: US-JNJCP-30000359938

PATIENT
  Sex: Female

DRUGS (1)
  1. AVEENO BABY CONTINUOUS PROTECTION SUNSCREEN BROAD SPECTRUM SPF55 [Suspect]
     Active Substance: AVOBENZONE\HOMOSALATE\OCTISALATE\OCTOCRYLENE\OXYBENZONE
     Indication: PRODUCT USED FOR UNKNOWN INDICATION
     Route: 061
     Dates: start: 20161009, end: 20161016

REACTIONS (4)
  - Application site rash [Recovered/Resolved]
  - Application site pain [Recovered/Resolved]
  - Application site pruritus [Recovered/Resolved]
  - Application site warmth [Recovered/Resolved]

NARRATIVE: CASE EVENT DATE: 20161009
